FAERS Safety Report 6915198-0 (Version None)
Quarter: 2010Q3

REPORT INFORMATION
  Report Type: 
  Country: None (occurrence: None)
  Receive Date: 20100805
  Receipt Date: 20100805
  Transmission Date: 20110219
  Serious: Yes (Hospitalization)
  Sender: FDA-Public Use
  Company Number: None

PATIENT
  Age: 84 Year
  Sex: Male
  Weight: 71.1 kg

DRUGS (1)
  1. CHOLESTYRAMINE [Suspect]
     Indication: FAECAL INCONTINENCE
     Dosage: 4 GM EVERY DAY PO
     Route: 048
     Dates: start: 20100110, end: 20100209

REACTIONS (1)
  - SMALL INTESTINAL OBSTRUCTION [None]
